FAERS Safety Report 8227204-4 (Version None)
Quarter: 2012Q1

REPORT INFORMATION
  Report Type: 
  Country: None (occurrence: None)
  Receive Date: 20120322
  Receipt Date: 20120312
  Transmission Date: 20120608
  Serious: Yes (Other)
  Sender: FDA-Public Use
  Company Number: US-JNJFOC-20120306726

PATIENT
  Sex: Female
  Weight: 106.6 kg

DRUGS (1)
  1. REMICADE [Suspect]
     Indication: PSORIATIC ARTHROPATHY
     Route: 042
     Dates: start: 20111101, end: 20111230

REACTIONS (8)
  - ULCER [None]
  - GASTRIC DISORDER [None]
  - PSORIATIC ARTHROPATHY [None]
  - OSTEOARTHRITIS [None]
  - PAIN [None]
  - PYREXIA [None]
  - IRRITABLE BOWEL SYNDROME [None]
  - HERNIA [None]
